FAERS Safety Report 5312042-2 (Version None)
Quarter: 2007Q2

REPORT INFORMATION
  Report Type: 
  Country: None (occurrence: None)
  Receive Date: 20070430
  Receipt Date: 20060801
  Transmission Date: 20071010
  Serious: No
  Sender: FDA-Public Use
  Company Number: 2006UW15433

PATIENT
  Age: 58 Year
  Sex: Female
  Weight: 68.9 kg

DRUGS (4)
  1. NEXIUM [Suspect]
     Indication: GASTROOESOPHAGEAL REFLUX DISEASE
     Route: 048
  2. NEXIUM [Suspect]
     Indication: HIATUS HERNIA
     Route: 048
  3. UROSODIOL [Concomitant]
  4. ANTIHYPERTENSIVE [Concomitant]

REACTIONS (1)
  - HAEMATEMESIS [None]
